FAERS Safety Report 21594593 (Version 1)
Quarter: 2022Q4

REPORT INFORMATION
  Report Type: Other
  Country: FR (occurrence: None)
  Receive Date: 20221115
  Receipt Date: 20221115
  Transmission Date: 20230113
  Serious: Yes (Hospitalization, Other)
  Sender: FDA-Public Use
  Company Number: FR-ROCHE-3217297

PATIENT
  Age: 24 Year
  Sex: Female

DRUGS (18)
  1. RITUXIMAB [Suspect]
     Active Substance: RITUXIMAB
     Indication: Graft versus host disease in skin
     Dosage: 4-WEEK COURSE THEN MONTHLY UP TO APRIL 2019
     Route: 042
     Dates: start: 201806, end: 201904
  2. MYCOPHENOLATE MOFETIL [Suspect]
     Active Substance: MYCOPHENOLATE MOFETIL
     Indication: Prophylaxis against graft versus host disease
     Route: 065
  3. MYCOPHENOLATE MOFETIL [Suspect]
     Active Substance: MYCOPHENOLATE MOFETIL
     Indication: Prophylaxis against transplant rejection
     Route: 065
     Dates: start: 201309
  4. CYCLOSPORINE [Suspect]
     Active Substance: CYCLOSPORINE
     Indication: Prophylaxis against graft versus host disease
     Dosage: STARTED ON DAY 1, THEN GRADUALLY DECREASED
     Route: 065
     Dates: start: 2011
  5. CYCLOSPORINE [Suspect]
     Active Substance: CYCLOSPORINE
     Route: 061
  6. PREDNISOLONE [Suspect]
     Active Substance: PREDNISOLONE
     Indication: Prophylaxis against graft versus host disease
     Dosage: 1 MG/KG/DAY, 70 MG/DAY
     Route: 065
  7. PREDNISOLONE [Suspect]
     Active Substance: PREDNISOLONE
     Route: 065
     Dates: start: 201303
  8. TACROLIMUS [Suspect]
     Active Substance: TACROLIMUS
     Indication: Prophylaxis against graft versus host disease
     Route: 065
  9. METHOTREXATE [Concomitant]
     Active Substance: METHOTREXATE
     Indication: Prophylaxis against graft versus host disease
     Dosage: ON DAY+1
     Route: 058
     Dates: start: 2011
  10. METHOTREXATE [Concomitant]
     Active Substance: METHOTREXATE
     Dosage: ON DAY+3 AND DAY+6
     Route: 058
  11. DAUNORUBICIN [Concomitant]
     Active Substance: DAUNORUBICIN
     Indication: Acute myeloid leukaemia
  12. CYTARABINE [Concomitant]
     Active Substance: CYTARABINE
     Indication: Acute myeloid leukaemia
  13. GEMTUZUMAB OZOGAMICIN [Concomitant]
     Active Substance: GEMTUZUMAB OZOGAMICIN
  14. SYMBICORT [Concomitant]
     Active Substance: BUDESONIDE\FORMOTEROL FUMARATE DIHYDRATE
  15. SPIRIVA [Concomitant]
     Active Substance: TIOTROPIUM BROMIDE MONOHYDRATE
  16. IMATINIB [Concomitant]
     Active Substance: IMATINIB
     Dates: start: 201304
  17. IMATINIB [Concomitant]
     Active Substance: IMATINIB
     Dates: start: 201309
  18. RUXOLITINIB [Concomitant]
     Active Substance: RUXOLITINIB

REACTIONS (5)
  - Pneumonia cytomegaloviral [Recovered/Resolved]
  - Influenza [Recovered/Resolved]
  - Pneumonia pneumococcal [Recovered/Resolved]
  - Bronchopulmonary aspergillosis [Recovered/Resolved]
  - Pneumonia [Recovered/Resolved]

NARRATIVE: CASE EVENT DATE: 20151201
